FAERS Safety Report 11428865 (Version 1)
Quarter: 2015Q3

REPORT INFORMATION
  Report Type: Spontaneous
  Country: US (occurrence: US)
  Receive Date: 20150828
  Receipt Date: 20150828
  Transmission Date: 20151125
  Serious: Yes (Hospitalization)
  Sender: FDA-Public Use
  Company Number: US-BAYER-2015-407020

PATIENT
  Age: 50 Year
  Sex: Female

DRUGS (10)
  1. THYROID [Concomitant]
     Active Substance: LEVOTHYROXINE\LIOTHYRONINE
     Dosage: 15 MG, UNK
     Route: 048
  2. AZITHROMYCIN [Concomitant]
     Active Substance: AZITHROMYCIN ANHYDROUS
     Dosage: 250 MG, UNK
     Route: 048
  3. BLEPHAMIDE [PREDNISOLONE ACETATE,SULFACETAMIDE SODIUM] [Concomitant]
     Dosage: 0.28/10%
     Route: 061
  4. GIANVI [Suspect]
     Active Substance: DROSPIRENONE\ETHINYL ESTRADIOL
     Dosage: UNK
     Dates: start: 20111007
  5. LORTAB [Concomitant]
     Active Substance: ACETAMINOPHEN\HYDROCODONE BITARTRATE
     Dosage: 7.5/500 MG
     Route: 048
  6. YAZ [Suspect]
     Active Substance: DROSPIRENONE\ETHINYL ESTRADIOL
     Indication: CONTRACEPTION
  7. TIZANIDINE. [Concomitant]
     Active Substance: TIZANIDINE
     Dosage: 4 MG,
     Route: 048
  8. ARMOUR THYROID [Concomitant]
     Active Substance: THYROID, PORCINE\THYROID, UNSPECIFIED
     Dosage: 15 MG, QD
     Route: 048
  9. VITAMIN D [Concomitant]
     Active Substance: CHOLECALCIFEROL
  10. RESTASIS [Concomitant]
     Active Substance: CYCLOSPORINE
     Dosage: 0.05 %, UNK

REACTIONS (2)
  - Deep vein thrombosis [None]
  - Pulmonary embolism [None]

NARRATIVE: CASE EVENT DATE: 20111110
